FAERS Safety Report 8130583-X (Version None)
Quarter: 2012Q1

REPORT INFORMATION
  Report Type: 
  Country: None (occurrence: None)
  Receive Date: 20120212
  Receipt Date: 20120207
  Transmission Date: 20120608
  Serious: Yes (Life-Threatening, Hospitalization)
  Sender: FDA-Public Use
  Company Number: CN-BRACCO-000261

PATIENT
  Age: 78 Year
  Sex: Male

DRUGS (3)
  1. DECADRON [Concomitant]
     Route: 042
     Dates: start: 20120206, end: 20120206
  2. IOPAMIDOL [Suspect]
     Indication: UROGRAM
     Route: 042
     Dates: start: 20120206, end: 20120206
  3. IOPAMIDOL [Suspect]
     Indication: BLADDER CANCER
     Route: 042
     Dates: start: 20120206, end: 20120206

REACTIONS (10)
  - ATRIAL FIBRILLATION [None]
  - VENTRICULAR FIBRILLATION [None]
  - CONVULSION [None]
  - LOSS OF CONSCIOUSNESS [None]
  - VOMITING [None]
  - RESTLESSNESS [None]
  - CYANOSIS [None]
  - BLOOD PRESSURE IMMEASURABLE [None]
  - PULSE ABSENT [None]
  - NAUSEA [None]
